FAERS Safety Report 23801590 (Version 6)
Quarter: 2025Q1

REPORT INFORMATION
  Report Type: Report from Study
  Country: KR (occurrence: KR)
  Receive Date: 20240430
  Receipt Date: 20250222
  Transmission Date: 20250409
  Serious: Yes (Death, Hospitalization, Other)
  Sender: ABBVIE
  Company Number: KR-ABBVIE-5668445

PATIENT
  Age: 76 Year
  Sex: Male
  Weight: 49 kg

DRUGS (11)
  1. VENCLEXTA [Suspect]
     Active Substance: VENETOCLAX
     Indication: Acute myeloid leukaemia
     Route: 048
     Dates: start: 20240128, end: 20240128
  2. VENCLEXTA [Suspect]
     Active Substance: VENETOCLAX
     Indication: Acute myeloid leukaemia
     Route: 048
     Dates: start: 20240127, end: 20240127
  3. VENCLEXTA [Suspect]
     Active Substance: VENETOCLAX
     Indication: Acute myeloid leukaemia
     Route: 048
     Dates: start: 20240129, end: 20240209
  4. VENCLEXTA [Suspect]
     Active Substance: VENETOCLAX
     Indication: Acute myeloid leukaemia
     Route: 048
     Dates: start: 20240311, end: 20240321
  5. HEMOSIROX [Concomitant]
     Indication: Haemosiderosis
     Route: 048
     Dates: start: 20240213, end: 20240221
  6. ALLOPURINOL [Concomitant]
     Active Substance: ALLOPURINOL
     Indication: Prophylaxis
     Dosage: 100MG
     Route: 048
     Dates: start: 20240126
  7. DACOGEN [Concomitant]
     Active Substance: DECITABINE
     Indication: Acute myeloid leukaemia
     Route: 042
     Dates: start: 20240127, end: 20240131
  8. DACOGEN [Concomitant]
     Active Substance: DECITABINE
     Indication: Acute myeloid leukaemia
     Route: 042
     Dates: start: 20240311, end: 20240315
  9. LEVOFLOXACIN [Concomitant]
     Active Substance: LEVOFLOXACIN
     Indication: Infection prophylaxis
     Dosage: 500MG
     Route: 048
     Dates: start: 20240226, end: 20240304
  10. MAXIPIME [Concomitant]
     Active Substance: CEFEPIME HYDROCHLORIDE
     Indication: C-reactive protein increased
     Route: 042
     Dates: start: 20240129, end: 20240130
  11. Dong a suprax [Concomitant]
     Indication: Infection prophylaxis
     Dosage: DONGA SUPRAX 100MG
     Route: 048
     Dates: start: 20240131, end: 20240226

REACTIONS (2)
  - Intestinal sepsis [Fatal]
  - Pneumonia fungal [Recovered/Resolved]

NARRATIVE: CASE EVENT DATE: 20240304
